FAERS Safety Report 7558525-6 (Version None)
Quarter: 2011Q2

REPORT INFORMATION
  Report Type: 
  Country: None (occurrence: None)
  Receive Date: 20110620
  Receipt Date: 20110606
  Transmission Date: 20111010
  Serious: Yes (Hospitalization)
  Sender: FDA-Public Use
  Company Number: FR-SANOFI-AVENTIS-2011SA036107

PATIENT
  Age: 74 Year
  Sex: Male

DRUGS (10)
  1. ESIDRIX [Concomitant]
     Route: 048
  2. HYPERIUM [Concomitant]
     Route: 048
  3. ATORVASTATIN CALCIUM [Concomitant]
     Route: 048
  4. TRAMADOL HCL [Concomitant]
     Indication: PAIN
     Route: 048
  5. PLAVIX [Suspect]
     Route: 048
     Dates: end: 20110301
  6. VALSARTAN [Concomitant]
     Route: 048
  7. LERCANIDIPINE [Concomitant]
     Route: 048
  8. LANSOPRAZOLE [Concomitant]
     Route: 048
  9. RAMIPRIL [Concomitant]
     Route: 048
  10. PREVISCAN [Suspect]
     Route: 048
     Dates: end: 20110301

REACTIONS (1)
  - ANAEMIA [None]
